FAERS Safety Report 11279738 (Version 1)
Quarter: 2015Q3

REPORT INFORMATION
  Report Type: Spontaneous
  Country: US (occurrence: None)
  Receive Date: 20150716
  Receipt Date: 20150716
  Transmission Date: 20151125
  Serious: Yes (Hospitalization)
  Sender: FDA-Public Use
  Company Number: None

PATIENT
  Age: 19 Year
  Sex: Male
  Weight: 79.2 kg

DRUGS (3)
  1. PREDNISONE. [Suspect]
     Active Substance: PREDNISONE
     Dates: end: 20150608
  2. MERCAPTOPURINE. [Suspect]
     Active Substance: MERCAPTOPURINE
     Dates: end: 20150629
  3. METHOTREXATE [Suspect]
     Active Substance: METHOTREXATE
     Dates: end: 20150625

REACTIONS (11)
  - Weight decreased [None]
  - Neutropenic colitis [None]
  - Pyrexia [None]
  - Fatigue [None]
  - Retching [None]
  - Blood immunoglobulin G decreased [None]
  - Decreased appetite [None]
  - Anaemia [None]
  - Oral candidiasis [None]
  - Hyponatraemia [None]
  - Hyperbilirubinaemia [None]

NARRATIVE: CASE EVENT DATE: 20150708
